FAERS Safety Report 7647439-9 (Version None)
Quarter: 2011Q3

REPORT INFORMATION
  Report Type: 
  Country: None (occurrence: None)
  Receive Date: 20110801
  Receipt Date: 20110727
  Transmission Date: 20111222
  Serious: Yes (Other)
  Sender: FDA-Public Use
  Company Number: JP-B.I. PHARMACEUTICALS,INC./RIDGEFIELD-2011-DE-04331GD

PATIENT
  Sex: Male

DRUGS (1)
  1. TELMISARTAN [Suspect]

REACTIONS (3)
  - BLOOD PRESSURE SYSTOLIC DECREASED [None]
  - BLOOD CREATININE INCREASED [None]
  - ANURIA [None]
